FAERS Safety Report 22158286 (Version 1)
Quarter: 2023Q1

REPORT INFORMATION
  Report Type: Report from Study
  Country: CA (occurrence: CA)
  Receive Date: 20230331
  Receipt Date: 20230331
  Transmission Date: 20230417
  Serious: Yes (Hospitalization)
  Sender: FDA-Public Use
  Company Number: CA-ABBVIE-4710493

PATIENT
  Age: 53 Year
  Sex: Male

DRUGS (1)
  1. GLECAPREVIR\PIBRENTASVIR [Suspect]
     Active Substance: GLECAPREVIR\PIBRENTASVIR
     Indication: Chronic hepatitis C
     Dosage: TIME INTERVAL: 0.33333333 DAYS: FIRST ADMIN DATE- 10 MAR 2023
     Route: 048

REACTIONS (3)
  - Influenza [Unknown]
  - Malaise [Unknown]
  - Hypersomnia [Unknown]

NARRATIVE: CASE EVENT DATE: 20230301
